FAERS Safety Report 13661840 (Version 5)
Quarter: 2018Q3

REPORT INFORMATION
  Report Type: Spontaneous
  Country: KR (occurrence: KR)
  Receive Date: 20170616
  Receipt Date: 20180801
  Transmission Date: 20181010
  Serious: Yes (Death)
  Sender: FDA-Public Use
  Company Number: KR-009507513-1612KOR001771

PATIENT
  Age: 67 Year
  Sex: Male

DRUGS (52)
  1. EMEND (FOSAPREPITANT DIMEGLUMINE) [Suspect]
     Active Substance: FOSAPREPITANT DIMEGLUMINE
     Dosage: 150 MG, ONCE
     Route: 042
     Dates: start: 20160503, end: 20160503
  2. EPS [Concomitant]
     Indication: LUNG NEOPLASM MALIGNANT
     Dosage: 148MG; QD, CYCLE: 2; STRENGHT: 100MG/5ML
     Route: 042
     Dates: start: 20160322, end: 20160324
  3. CURAN [Concomitant]
     Active Substance: RANITIDINE HYDROCHLORIDE
     Indication: PROPHYLAXIS
     Dosage: 150 MG, BID
     Route: 048
     Dates: start: 2016, end: 20160323
  4. WINUF [Concomitant]
     Dosage: 1085 ML, ONCE, ONCE
     Route: 042
     Dates: start: 20160529, end: 20160529
  5. TRIDOL (TRAMADOL HYDROCHLORIDE) [Concomitant]
     Dosage: 50 MG, ONCE, STRENGHT: 50MG/ML
     Route: 042
     Dates: start: 20160402, end: 20160402
  6. EPS [Concomitant]
     Dosage: 148 MG, QD, CYCLE: 3; STRENGHT: 100MG/5ML
     Route: 042
     Dates: start: 20160525, end: 20160527
  7. CISPLATIN. [Concomitant]
     Active Substance: CISPLATIN
     Dosage: 76 MG, ONCE, CYCLE: 4; STRENGHT: 10MG/20ML
     Route: 042
     Dates: start: 20160525, end: 20160525
  8. LASIX [Concomitant]
     Active Substance: FUROSEMIDE
     Dosage: 20 MG, ONCE, STRENGHT: 20MG/2ML
     Route: 042
     Dates: start: 20160503, end: 20160503
  9. LASIX [Concomitant]
     Active Substance: FUROSEMIDE
     Dosage: 20 MG, ONCE, STRENGHT: 20MG/2ML
     Route: 042
     Dates: start: 20160525, end: 20160525
  10. MACPERAN [Concomitant]
     Active Substance: METOCLOPRAMIDE HYDROCHLORIDE
     Indication: PROPHYLAXIS OF NAUSEA AND VOMITING
     Dosage: 10 MG, QD
     Route: 042
     Dates: start: 20160323, end: 20160324
  11. MACPERAN [Concomitant]
     Active Substance: METOCLOPRAMIDE HYDROCHLORIDE
     Indication: PROPHYLAXIS OF NAUSEA AND VOMITING
     Dosage: 5 MG,TID
     Route: 048
     Dates: start: 20160325, end: 20160330
  12. POTASSIUM CHLORIDE DAIHAN [Concomitant]
     Indication: PROPHYLAXIS
     Dosage: 10 ML, BID
     Route: 042
     Dates: start: 20160322, end: 20160322
  13. POTASSIUM CHLORIDE DAIHAN [Concomitant]
     Dosage: 10 ML, BID
     Route: 042
     Dates: start: 20160503, end: 20160503
  14. DAEWON ES [Concomitant]
     Indication: PROPHYLAXIS
     Dosage: 5 ML, QD
     Route: 048
     Dates: start: 2016
  15. DUPHALAC [Concomitant]
     Active Substance: LACTULOSE
     Indication: CONSTIPATION PROPHYLAXIS
     Dosage: 15 ML, TID
     Route: 048
     Dates: start: 2016
  16. EMEND (FOSAPREPITANT DIMEGLUMINE) [Suspect]
     Active Substance: FOSAPREPITANT DIMEGLUMINE
     Indication: PROPHYLAXIS OF NAUSEA AND VOMITING
     Dosage: 150 MG, ONCE
     Route: 042
     Dates: start: 20160322, end: 20160322
  17. EMEND (FOSAPREPITANT DIMEGLUMINE) [Suspect]
     Active Substance: FOSAPREPITANT DIMEGLUMINE
     Dosage: 150 MG, ONCE
     Route: 042
     Dates: start: 20160525, end: 20160525
  18. CISPLATIN. [Concomitant]
     Active Substance: CISPLATIN
     Dosage: 76 MG, ONCE, CYCLE: 3; STRENGHT: 10MG/20ML
     Route: 042
     Dates: start: 20160503, end: 20160503
  19. DEXAMETHASONE SODIUM PHOSPHATE. [Concomitant]
     Active Substance: DEXAMETHASONE SODIUM PHOSPHATE
     Dosage: 5 MG, QD
     Route: 042
     Dates: start: 20160503, end: 20160505
  20. DEXAMETHASONE SODIUM PHOSPHATE. [Concomitant]
     Active Substance: DEXAMETHASONE SODIUM PHOSPHATE
     Dosage: 5 MG, QD
     Route: 042
     Dates: start: 20160525, end: 20160527
  21. DICODE [Concomitant]
     Indication: PAIN PROPHYLAXIS
     Dosage: 1 TABLET, BID
     Route: 048
     Dates: start: 2016
  22. TOPISOL [Concomitant]
     Indication: PROPHYLAXIS
     Dosage: UNK MG, QD
     Route: 003
     Dates: start: 20160321
  23. TRIDOL (TRAMADOL HYDROCHLORIDE) [Concomitant]
     Indication: PAIN PROPHYLAXIS
     Dosage: 50 MG, QD, STRENGHT: 50MG/ML
     Route: 042
     Dates: start: 20160328, end: 20160331
  24. EPS [Concomitant]
     Dosage: 148 MG, QD, CYCLE: 3; STRENGHT: 100MG/5ML
     Route: 042
     Dates: start: 20160503, end: 20160505
  25. LASIX [Concomitant]
     Active Substance: FUROSEMIDE
     Indication: PROPHYLAXIS
     Dosage: 20 MG, ONCE, STRENGHT: 20MG/2ML
     Route: 042
     Dates: start: 20160322, end: 20160322
  26. PLAKON [Concomitant]
     Dosage: 1.5 MG, ONCE, STRENGHT: 3MG/2ML
     Route: 042
     Dates: start: 20160401, end: 20160401
  27. DUPHALAC [Concomitant]
     Active Substance: LACTULOSE
     Dosage: UNK
  28. IRCODON [Concomitant]
     Active Substance: OXYCODONE HYDROCHLORIDE
     Indication: PAIN PROPHYLAXIS
     Dosage: 10 MG, QD
     Route: 048
     Dates: start: 20160325
  29. SMOFLIPID [Concomitant]
     Active Substance: FISH OIL\MEDIUM-CHAIN TRIGLYCERIDES\OLIVE OIL\SOYBEAN OIL
     Indication: PROPHYLAXIS
     Dosage: 250 ML, FORMULATION: 100ML
     Route: 042
     Dates: start: 20160326, end: 20160326
  30. MAGNESIN (MAGNESIUM SULFATE) [Concomitant]
     Dosage: 1 G, BID
     Route: 042
     Dates: start: 20160525, end: 20160525
  31. PLAKON [Concomitant]
     Indication: PROPHYLAXIS OF NAUSEA AND VOMITING
     Dosage: 1.5 MG, QD, STRENGHT: 3MG/2ML
     Route: 042
     Dates: start: 20160323, end: 20160324
  32. GABAPENTIN. [Concomitant]
     Active Substance: GABAPENTIN
     Indication: PAIN PROPHYLAXIS
     Dosage: 300 MG, TID
     Route: 048
     Dates: start: 2016
  33. CETIZAL [Concomitant]
     Indication: PROPHYLAXIS
     Dosage: 5 MG, QD
     Route: 048
     Dates: start: 20160322, end: 20160330
  34. BEARSE [Concomitant]
     Indication: PROPHYLAXIS
     Dosage: 1 TABLET, ONCE
     Route: 048
     Dates: start: 20160326, end: 20160326
  35. ALOXI [Concomitant]
     Active Substance: PALONOSETRON HYDROCHLORIDE
     Indication: PROPHYLAXIS OF NAUSEA AND VOMITING
     Dosage: 5 MG, ONCE
     Route: 042
     Dates: start: 20160322, end: 20160322
  36. ALOXI [Concomitant]
     Active Substance: PALONOSETRON HYDROCHLORIDE
     Dosage: 5 ML, ONCE
     Route: 042
     Dates: start: 20060525, end: 20160525
  37. TARGIN [Concomitant]
     Active Substance: NALOXONE HYDROCHLORIDE\OXYCODONE HYDROCHLORIDE
     Indication: PAIN PROPHYLAXIS
     Dosage: 20 MG, BID
     Route: 048
     Dates: start: 2016
  38. WINUF [Concomitant]
     Indication: PROPHYLAXIS
     Dosage: 1085 ML, ONCE
     Route: 042
     Dates: start: 20160316, end: 20160316
  39. PENIRAMIN [Concomitant]
     Indication: PROPHYLAXIS
     Dosage: 2 MG, QD
     Route: 048
     Dates: start: 20160321, end: 20160329
  40. MAGNESIN (MAGNESIUM SULFATE) [Concomitant]
     Dosage: 1 G, BID
     Route: 042
     Dates: start: 20160503, end: 20160503
  41. POTASSIUM CHLORIDE DAIHAN [Concomitant]
     Dosage: 10 ML, BID
     Route: 042
     Dates: start: 20160525, end: 20160525
  42. MOTILITONE [Concomitant]
     Active Substance: HERBALS
     Indication: PROPHYLAXIS
     Dosage: 1 TABLET, TID
     Route: 048
     Dates: start: 2016, end: 20160323
  43. MAGMIL [Concomitant]
     Active Substance: MAGNESIUM HYDROXIDE
     Indication: CONSTIPATION PROPHYLAXIS
     Dosage: 0.5 G, TID
     Route: 048
     Dates: start: 2016, end: 20160323
  44. MAGMIL [Concomitant]
     Active Substance: MAGNESIUM HYDROXIDE
     Dosage: 1.5 MG, TID
     Route: 048
     Dates: start: 20160506, end: 20160516
  45. WINUF [Concomitant]
     Dosage: 1085 ML, FREQUENCY: 1
     Route: 042
     Dates: start: 20160320, end: 20160320
  46. DIFLUCAN [Concomitant]
     Active Substance: FLUCONAZOLE
     Indication: INFECTION PROPHYLAXIS
     Dosage: 50 MG
     Route: 048
     Dates: start: 20160320, end: 20160405
  47. MAXIPIME [Concomitant]
     Active Substance: CEFEPIME HYDROCHLORIDE
     Indication: INFECTION PROPHYLAXIS
     Dosage: 2 G
     Route: 042
     Dates: start: 20160328, end: 20160331
  48. CISPLATIN. [Concomitant]
     Active Substance: CISPLATIN
     Indication: LUNG NEOPLASM MALIGNANT
     Dosage: 99MG; ONCE, CYCLE: 2; STRENGHT: 10MG/20ML
     Route: 042
     Dates: start: 20160322, end: 20160322
  49. DEXAMETHASONE SODIUM PHOSPHATE. [Concomitant]
     Active Substance: DEXAMETHASONE SODIUM PHOSPHATE
     Indication: PROPHYLAXIS OF NAUSEA AND VOMITING
     Dosage: 5MG; STRENGHT: 5MG/ML
     Route: 042
     Dates: start: 20160322, end: 20160325
  50. ALOXI [Concomitant]
     Active Substance: PALONOSETRON HYDROCHLORIDE
     Dosage: 5 ML, ONCE
     Route: 042
     Dates: start: 20160503, end: 20160503
  51. MAGNESIN (MAGNESIUM SULFATE) [Concomitant]
     Indication: PROPHYLAXIS
     Dosage: 1 G, BID
     Route: 042
     Dates: start: 20160322, end: 20160322
  52. NEO MEDICOUGH [Concomitant]
     Indication: PROPHYLAXIS
     Dosage: 1 TABLET, TID
     Route: 048
     Dates: start: 2016, end: 20160323

REACTIONS (5)
  - Paraesthesia [Recovered/Resolved with Sequelae]
  - Neutrophil count decreased [Recovered/Resolved]
  - Haemoglobin decreased [Not Recovered/Not Resolved]
  - Dizziness [Recovered/Resolved]
  - Dyspnoea [Fatal]

NARRATIVE: CASE EVENT DATE: 20160328
